FAERS Safety Report 8387675-X (Version None)
Quarter: 2012Q2

REPORT INFORMATION
  Report Type: 
  Country: None (occurrence: None)
  Receive Date: 20120525
  Receipt Date: 20120521
  Transmission Date: 20120825
  Serious: No
  Sender: FDA-Public Use
  Company Number: US-PFIZER INC-2012123656

PATIENT
  Sex: Female

DRUGS (4)
  1. ZOLOFT [Suspect]
     Dosage: UNK
  2. FLEXERIL [Suspect]
     Dosage: UNK
  3. LUNESTA [Suspect]
     Dosage: UNK
  4. LAMICTAL [Suspect]
     Dosage: UNK

REACTIONS (3)
  - MUSCLE TWITCHING [None]
  - JOINT STIFFNESS [None]
  - MUSCLE CONTRACTIONS INVOLUNTARY [None]
